FAERS Safety Report 7758597-X (Version None)
Quarter: 2011Q3

REPORT INFORMATION
  Report Type: 
  Country: None (occurrence: None)
  Receive Date: 20110919
  Receipt Date: 20110905
  Transmission Date: 20111222
  Serious: Yes (Life-Threatening)
  Sender: FDA-Public Use
  Company Number: FR-ELI_LILLY_AND_COMPANY-FR201109001095

PATIENT
  Sex: Female

DRUGS (17)
  1. ZYPREXA [Suspect]
     Indication: DELUSION
     Dosage: 0.5 DF, UNK
     Route: 048
     Dates: start: 20110726, end: 20110726
  2. REPAGLINIDE [Concomitant]
     Dosage: 0.5 DF, TID
  3. DIPROSALIC [Concomitant]
     Dosage: 1 DF, QD
  4. CALCIUM +D3 [Concomitant]
     Dosage: UNK, QD
  5. ACETAMINOPHEN [Concomitant]
     Dosage: 3 G, QD
  6. TANAKAN [Concomitant]
     Dosage: 3 DF, QD
  7. BONIVA [Concomitant]
     Dosage: UNK, WEEKLY (1/W)
  8. BISOPROLOL FUMARATE [Concomitant]
     Dosage: 1.25 MG, QD
  9. GAVISCON                                /GFR/ [Concomitant]
     Dosage: 3 DF, QD
  10. LYRICA [Concomitant]
  11. PERINDOPRIL ERBUMINE [Concomitant]
     Dosage: 0.5 DF, QD
  12. LASIX [Concomitant]
     Dosage: 40 MG, QD
  13. TRAMADOL HCL [Concomitant]
     Dosage: 50 MG, QD
  14. VALSARTAN [Concomitant]
     Dosage: 40 MG, QD
  15. VALACYCLOVIR HYDROCHLORIDE [Concomitant]
     Dosage: UNK
     Dates: start: 20110722
  16. ASPEGIC 325 [Concomitant]
     Dosage: 30 MG, QD
  17. STROMECTOL [Concomitant]
     Dosage: UNK
     Dates: start: 20110723

REACTIONS (4)
  - PALLOR [None]
  - LOSS OF CONSCIOUSNESS [None]
  - SYNCOPE [None]
  - WRONG TECHNIQUE IN DRUG USAGE PROCESS [None]
